FAERS Safety Report 14822612 (Version 1)
Quarter: 2018Q2

REPORT INFORMATION
  Report Type: Spontaneous
  Country: JP (occurrence: JP)
  Receive Date: 20180427
  Receipt Date: 20180427
  Transmission Date: 20180711
  Serious: Yes (Hospitalization, Other)
  Sender: FDA-Public Use
  Company Number: JP-009507513-1707JPN000489J

PATIENT
  Age: 64 Year
  Sex: Male
  Weight: 61 kg

DRUGS (2)
  1. KEYTRUDA [Suspect]
     Active Substance: PEMBROLIZUMAB
     Indication: SQUAMOUS CELL CARCINOMA OF LUNG
     Dosage: 200 MG, Q3W
     Route: 041
     Dates: start: 20170511, end: 20170601
  2. KEYTRUDA [Suspect]
     Active Substance: PEMBROLIZUMAB
     Dosage: 200 MG, UNKNOWN
     Route: 041
     Dates: start: 20180327, end: 20180327

REACTIONS (8)
  - Rash [Not Recovered/Not Resolved]
  - Malignant neoplasm progression [Unknown]
  - Diarrhoea [Not Recovered/Not Resolved]
  - Large intestinal haemorrhage [Unknown]
  - Decreased appetite [Recovering/Resolving]
  - Pyrexia [Recovering/Resolving]
  - Pyrexia [Unknown]
  - Diarrhoea [Recovering/Resolving]

NARRATIVE: CASE EVENT DATE: 20170629
